FAERS Safety Report 12726253 (Version 2)
Quarter: 2016Q3

REPORT INFORMATION
  Report Type: Report from Study
  Country: JP (occurrence: JP)
  Receive Date: 20160908
  Receipt Date: 20160921
  Transmission Date: 20161109
  Serious: Yes (Death, Hospitalization, Other)
  Sender: FDA-Public Use
  Company Number: JP-BRISTOL-MYERS SQUIBB COMPANY-BMS-2016-073119

PATIENT
  Age: 81 Year
  Sex: Male
  Weight: 43 kg

DRUGS (5)
  1. APIXABAN [Suspect]
     Active Substance: APIXABAN
     Indication: CEREBROVASCULAR ACCIDENT PROPHYLAXIS
     Dosage: 2.5 MG, BID
     Route: 048
     Dates: start: 20131024, end: 20140927
  2. BERIZYM                            /01945301/ [Concomitant]
     Indication: PROPHYLAXIS
     Dosage: 9 G, QD
     Route: 048
     Dates: start: 20131127
  3. MAGNESIUM OXIDE. [Concomitant]
     Active Substance: MAGNESIUM OXIDE
     Indication: PROPHYLAXIS
     Dosage: 4.5 G, QD
     Route: 048
     Dates: start: 20131127
  4. HOCHUEKKITO                        /07973001/ [Concomitant]
     Active Substance: HERBALS
     Indication: PROPHYLAXIS
     Dosage: 22.5 G, QD
     Route: 048
     Dates: start: 20131127
  5. FERROUS SULFATE. [Concomitant]
     Active Substance: FERROUS SULFATE
     Indication: PROPHYLAXIS
     Dosage: 210 MG, QD
     Route: 048
     Dates: start: 20140219

REACTIONS (5)
  - Cardio-respiratory arrest [Fatal]
  - Dysphagia [Unknown]
  - Pneumonia [Fatal]
  - Cerebrovascular accident [Unknown]
  - Cerebral infarction [Not Recovered/Not Resolved]

NARRATIVE: CASE EVENT DATE: 20140825
